FAERS Safety Report 16446889 (Version 1)
Quarter: 2019Q2

REPORT INFORMATION
  Report Type: Spontaneous
  Country: US (occurrence: US)
  Receive Date: 20190618
  Receipt Date: 20190618
  Transmission Date: 20190711
  Serious: Yes (Other)
  Sender: FDA-Public Use
  Company Number: US-SA-2019SA160427

PATIENT
  Age: 63 Year
  Sex: Female

DRUGS (1)
  1. TOUJEO [Suspect]
     Active Substance: INSULIN GLARGINE
     Indication: TYPE 2 DIABETES MELLITUS
     Dosage: 18-22 UNITS, QD
     Route: 065

REACTIONS (5)
  - Back disorder [Unknown]
  - Blood glucose increased [Unknown]
  - Fatigue [Unknown]
  - Blood glucose decreased [Unknown]
  - Escherichia infection [Unknown]
